FAERS Safety Report 15809145 (Version 3)
Quarter: 2019Q1

REPORT INFORMATION
  Report Type: Report from Study
  Country: US (occurrence: US)
  Receive Date: 20190110
  Receipt Date: 20190214
  Transmission Date: 20190417
  Serious: Yes (Death, Hospitalization)
  Sender: FDA-Public Use
  Company Number: US-ACTELION-A-US2018-179782

PATIENT
  Age: 83 Year
  Sex: Female

DRUGS (3)
  1. TYVASO [Concomitant]
     Active Substance: TREPROSTINIL
  2. WARFARIN [Concomitant]
     Active Substance: WARFARIN
  3. TRACLEER [Suspect]
     Active Substance: BOSENTAN
     Indication: PULMONARY ARTERIAL HYPERTENSION
     Dosage: 125 MG, BID
     Route: 048
     Dates: start: 20080811

REACTIONS (5)
  - Unevaluable event [Unknown]
  - Malaise [Unknown]
  - Dysphagia [Unknown]
  - Urinary tract infection [Unknown]
  - Death [Fatal]

NARRATIVE: CASE EVENT DATE: 20190207
